FAERS Safety Report 6321121-2 (Version None)
Quarter: 2009Q3

REPORT INFORMATION
  Report Type: 
  Country: None (occurrence: None)
  Receive Date: 20090822
  Receipt Date: 20090209
  Transmission Date: 20100115
  Serious: No
  Sender: FDA-Public Use
  Company Number: US-ABBOTT-07P-163-0426032-00

PATIENT
  Sex: Male
  Weight: 78.996 kg

DRUGS (9)
  1. NIASPAN [Suspect]
     Indication: BLOOD TRIGLYCERIDES INCREASED
     Route: 048
  2. NIASPAN [Suspect]
     Route: 048
  3. NIASPAN [Suspect]
     Route: 048
     Dates: start: 19970101
  4. NIASPAN [Suspect]
     Indication: BLOOD TRIGLYCERIDES INCREASED
  5. LOPID [Concomitant]
     Indication: BLOOD TRIGLYCERIDES INCREASED
  6. FISH OIL [Concomitant]
     Indication: BLOOD TRIGLYCERIDES INCREASED
  7. POLYCOSINOL [Concomitant]
     Indication: DRUG USE FOR UNKNOWN INDICATION
  8. ASPIRIN [Concomitant]
     Indication: DRUG USE FOR UNKNOWN INDICATION
  9. WELCHOL [Concomitant]
     Indication: BLOOD TRIGLYCERIDES INCREASED

REACTIONS (7)
  - BLOOD URIC ACID INCREASED [None]
  - DRY MOUTH [None]
  - FLUSHING [None]
  - GOUT [None]
  - JOINT SWELLING [None]
  - NAUSEA [None]
  - PARAESTHESIA [None]
